FAERS Safety Report 6810846-8 (Version None)
Quarter: 2010Q2

REPORT INFORMATION
  Report Type: 
  Country: None (occurrence: None)
  Receive Date: 20100630
  Receipt Date: 20080625
  Transmission Date: 20101027
  Serious: No
  Sender: FDA-Public Use
  Company Number: US-PFIZER INC-2008050289

PATIENT
  Sex: Female
  Weight: 77.3 kg

DRUGS (4)
  1. ESTRING [Suspect]
     Indication: MENOPAUSAL SYMPTOMS
     Route: 067
  2. ESTRING [Suspect]
     Indication: VULVOVAGINAL DRYNESS
  3. ZESTRIL [Concomitant]
  4. LIPITOR [Concomitant]

REACTIONS (4)
  - AGITATION [None]
  - DRUG EFFECT DECREASED [None]
  - HOT FLUSH [None]
  - NIGHT SWEATS [None]
